APPROVED DRUG PRODUCT: QUASENSE
Active Ingredient: ETHINYL ESTRADIOL; LEVONORGESTREL
Strength: 0.03MG;0.15MG
Dosage Form/Route: TABLET;ORAL
Application: A077101 | Product #001 | TE Code: AB
Applicant: WATSON LABORATORIES INC
Approved: Sep 6, 2006 | RLD: No | RS: No | Type: RX